FAERS Safety Report 4759784-5 (Version None)
Quarter: 2005Q3

REPORT INFORMATION
  Report Type: 
  Country: None (occurrence: None)
  Receive Date: 20050902
  Receipt Date: 20050602
  Transmission Date: 20060218
  Serious: Yes (Life-Threatening, Hospitalization, Disabling)
  Sender: FDA-Public Use
  Company Number: US-MERCK-0506USA00859

PATIENT
  Age: 57 Year
  Sex: Male
  Weight: 91 kg

DRUGS (3)
  1. VIOXX [Suspect]
     Indication: SPINAL COLUMN STENOSIS
     Route: 048
     Dates: start: 20000901, end: 20030901
  2. VIOXX [Suspect]
     Route: 048
     Dates: start: 20000901, end: 20030901
  3. LODINE [Concomitant]
     Route: 065

REACTIONS (6)
  - BACK DISORDER [None]
  - BLOOD CHOLESTEROL INCREASED [None]
  - CARDIAC DISORDER [None]
  - IMPLANTABLE DEFIBRILLATOR INSERTION [None]
  - LOSS OF EMPLOYMENT [None]
  - MYOCARDIAL INFARCTION [None]
